FAERS Safety Report 9655904 (Version 1)
Quarter: 2013Q4

REPORT INFORMATION
  Report Type: Spontaneous
  Country: CA (occurrence: CA)
  Receive Date: 20131030
  Receipt Date: 20131030
  Transmission Date: 20140711
  Serious: Yes (Other)
  Sender: FDA-Public Use
  Company Number: CA-BRISTOL-MYERS SQUIBB COMPANY-19619360

PATIENT
  Age: 59 Year
  Sex: Female

DRUGS (8)
  1. ELIQUIS [Suspect]
     Indication: CEREBROVASCULAR ACCIDENT PROPHYLAXIS
  2. ELIQUIS [Suspect]
     Indication: ATRIAL FIBRILLATION
  3. IMURAN [Concomitant]
  4. CYCLOSPORIN [Concomitant]
  5. METOPROLOL [Concomitant]
  6. FUROSEMIDE [Concomitant]
  7. RABEPRAZOLE [Concomitant]
  8. ALTACE [Concomitant]

REACTIONS (1)
  - Glomerular filtration rate decreased [Unknown]
